FAERS Safety Report 15179791 (Version 10)
Quarter: 2021Q2

REPORT INFORMATION
  Report Type: Other
  Country: DE (occurrence: DE)
  Receive Date: 20180723
  Receipt Date: 20210529
  Transmission Date: 20210716
  Serious: No
  Sender: FDA-Public Use
  Company Number: DE-ROCHE-2158254

PATIENT
  Age: 58 Year
  Sex: Female

DRUGS (11)
  1. OCREVUS [Suspect]
     Active Substance: OCRELIZUMAB
     Route: 042
     Dates: start: 20190108
  2. OCREVUS [Suspect]
     Active Substance: OCRELIZUMAB
     Indication: PRIMARY PROGRESSIVE MULTIPLE SCLEROSIS
     Route: 042
     Dates: start: 20180710
  3. IBUPROFEN. [Concomitant]
     Active Substance: IBUPROFEN
  4. TAMSULOSIN [Concomitant]
     Active Substance: TAMSULOSIN
  5. DEKRISTOL [Concomitant]
     Active Substance: CHOLECALCIFEROL
  6. FAMPYRA [Concomitant]
     Active Substance: DALFAMPRIDINE
  7. ALENDRONIC ACID [Concomitant]
     Active Substance: ALENDRONIC ACID
  8. CORTISONE [Suspect]
     Active Substance: CORTISONE
     Indication: PREMEDICATION
     Route: 065
  9. FAMPYRA [Concomitant]
     Active Substance: DALFAMPRIDINE
  10. FAMPYRA [Concomitant]
     Active Substance: DALFAMPRIDINE
  11. OCREVUS [Suspect]
     Active Substance: OCRELIZUMAB
     Route: 042
     Dates: start: 20200109

REACTIONS (10)
  - Sleep disorder [Recovered/Resolved]
  - Fatigue [Recovered/Resolved]
  - Muscle spasticity [Recovered/Resolved]
  - Oral herpes [Recovered/Resolved]
  - Muscular weakness [Recovered/Resolved]
  - Diarrhoea [Recovered/Resolved]
  - Alopecia [Recovered/Resolved]
  - Apathy [Recovered/Resolved]
  - Therapeutic product effect decreased [Recovered/Resolved]
  - Gait disturbance [Recovered/Resolved]

NARRATIVE: CASE EVENT DATE: 20180711
